FAERS Safety Report 6483566-X (Version None)
Quarter: 2009Q4

REPORT INFORMATION
  Report Type: 
  Country: None (occurrence: None)
  Receive Date: 20091209
  Receipt Date: 20091201
  Transmission Date: 20100525
  Serious: Yes (Other)
  Sender: FDA-Public Use
  Company Number: GB-PFIZER INC-2009295268

PATIENT
  Age: 31 Year
  Sex: Female

DRUGS (2)
  1. CHAMPIX [Suspect]
     Indication: SMOKING CESSATION THERAPY
     Dosage: 1 MG, 2X/DAY
     Dates: start: 20090916
  2. CHAMPIX [Suspect]
     Dosage: 0.5 MG, UNK

REACTIONS (2)
  - ABORTION SPONTANEOUS [None]
  - NAUSEA [None]
